FAERS Safety Report 6415671-8 (Version None)
Quarter: 2009Q4

REPORT INFORMATION
  Report Type: 
  Country: None (occurrence: None)
  Receive Date: 20091027
  Receipt Date: 20091007
  Transmission Date: 20100525
  Serious: Yes (Death, Hospitalization)
  Sender: FDA-Public Use
  Company Number: JP-JNJFOC-20090806298

PATIENT
  Sex: Female
  Weight: 53 kg

DRUGS (14)
  1. DOXORUBICIN HCL [Suspect]
     Dosage: CYCLE 2
     Route: 042
     Dates: start: 20090623, end: 20090722
  2. DOXORUBICIN HCL [Suspect]
     Indication: OVARIAN CANCER RECURRENT
     Dosage: CYCLE1
     Route: 042
     Dates: start: 20090623, end: 20090722
  3. ARTIST [Concomitant]
     Route: 048
  4. GASMOTIN [Concomitant]
     Indication: PROPHYLAXIS
     Route: 048
  5. MAGLAX [Concomitant]
     Route: 048
  6. CRAVIT [Concomitant]
     Route: 048
  7. CIPROFLOXACIN HYDROCHLORIDE [Concomitant]
     Route: 048
  8. SEFIROM [Concomitant]
     Route: 042
  9. MEROPENEM [Concomitant]
     Route: 042
  10. ROPION [Concomitant]
     Route: 042
  11. CALONAL [Concomitant]
     Route: 065
  12. PRIMPERAN [Concomitant]
     Indication: PROPHYLAXIS
     Route: 042
  13. GASTER [Concomitant]
     Indication: PROPHYLAXIS
     Route: 042
  14. NAIXAN [Concomitant]
     Route: 048

REACTIONS (4)
  - INTESTINAL OBSTRUCTION [None]
  - INTESTINAL PERFORATION [None]
  - OVARIAN CANCER [None]
  - PYREXIA [None]
